FAERS Safety Report 22391226 (Version 1)
Quarter: 2023Q2

REPORT INFORMATION
  Report Type: Spontaneous
  Country: DE (occurrence: DE)
  Receive Date: 20230601
  Receipt Date: 20230601
  Transmission Date: 20230721
  Serious: Yes (Hospitalization)
  Sender: FDA-Public Use
  Company Number: DE-ALKEM LABORATORIES LIMITED-IT-ALKEM-2023-05436

PATIENT
  Age: 2 Month
  Sex: Male

DRUGS (1)
  1. SIROLIMUS [Suspect]
     Active Substance: SIROLIMUS
     Indication: Lymphatic malformation
     Dosage: 0.8 MILLIGRAM/SQ. METER, BID (TARGET BLOOD CONCENTRATION 10-15 NG/ML)
     Route: 065

REACTIONS (4)
  - Catheter site ulcer [Unknown]
  - Catheter site necrosis [Unknown]
  - Viral infection [Unknown]
  - Off label use [Unknown]
